FAERS Safety Report 9725267 (Version 1)
Quarter: 2013Q4

REPORT INFORMATION
  Report Type: Spontaneous
  Country: US (occurrence: None)
  Receive Date: 20131129
  Receipt Date: 20131129
  Transmission Date: 20140711
  Serious: Yes (Other)
  Sender: FDA-Public Use
  Company Number: 2013P1021343

PATIENT
  Age: 69 Year
  Sex: Male
  Weight: 82.56 kg

DRUGS (2)
  1. GLYBURIDE [Suspect]
     Indication: TYPE 2 DIABETES MELLITUS
     Route: 048
  2. INVOKANA [Suspect]
     Indication: TYPE 2 DIABETES MELLITUS
     Route: 048
     Dates: start: 201305, end: 201307

REACTIONS (5)
  - Diarrhoea [None]
  - Dry mouth [None]
  - Dehydration [None]
  - Weight decreased [None]
  - Laceration [None]
